FAERS Safety Report 9665748 (Version 1)
Quarter: 2013Q4

REPORT INFORMATION
  Report Type: Spontaneous
  Country: DE (occurrence: DE)
  Receive Date: 20131104
  Receipt Date: 20131104
  Transmission Date: 20140711
  Serious: Yes (Other)
  Sender: FDA-Public Use
  Company Number: DE-SHIRE-ALL1-2013-07366

PATIENT
  Sex: Female

DRUGS (1)
  1. FOSRENOL [Suspect]
     Indication: PRODUCT USED FOR UNKNOWN INDICATION
     Dosage: UNK, UNKNOWN
     Route: 048

REACTIONS (4)
  - Peritonitis [Unknown]
  - Gastrointestinal perforation [Unknown]
  - Abdominal distension [Unknown]
  - Abdominal discomfort [Unknown]
